FAERS Safety Report 4268820-4 (Version None)
Quarter: 2004Q1

REPORT INFORMATION
  Report Type: 
  Country: None (occurrence: None)
  Receive Date: 20040109
  Receipt Date: 20031022
  Transmission Date: 20041129
  Serious: Yes (Other)
  Sender: FDA-Public Use
  Company Number: JP-34820

PATIENT
  Age: 35 Year
  Sex: Female

DRUGS (5)
  1. RISPERDAL [Suspect]
     Dosage: 1 MG, 1 IN 1 DAY, ORAL
     Route: 048
  2. LEPTICUR (TROPATEPINE HYDROCHLORIDE) [Concomitant]
  3. CHLORPROMAZINE [Concomitant]
  4. TRANXENE [Concomitant]
  5. SUBUTEX [Concomitant]

REACTIONS (11)
  - COMPLICATIONS OF MATERNAL EXPOSURE TO THERAPEUTIC DRUGS [None]
  - CONGENITAL ANOMALY [None]
  - DYSPLASIA [None]
  - EAR DISORDER [None]
  - FACIAL DYSMORPHISM [None]
  - GESTATIONAL DIABETES [None]
  - MATERNAL DRUGS AFFECTING FOETUS [None]
  - OESOPHAGEAL ATRESIA [None]
  - POLYHYDRAMNIOS [None]
  - PREGNANCY [None]
  - UMBILICAL CORD ABNORMALITY [None]
